FAERS Safety Report 19095641 (Version 5)
Quarter: 2021Q4

REPORT INFORMATION
  Report Type: Spontaneous
  Country: US (occurrence: US)
  Receive Date: 20210406
  Receipt Date: 20211121
  Transmission Date: 20220303
  Serious: Yes (Other)
  Sender: FDA-Public Use
  Company Number: US-009507513-2104USA000550

PATIENT
  Age: 78 Year
  Sex: Male

DRUGS (8)
  1. KEYTRUDA [Suspect]
     Active Substance: PEMBROLIZUMAB
     Indication: Transitional cell carcinoma
     Dosage: 200 MG, EVERY 3 WEEKS
     Route: 042
     Dates: start: 20201010, end: 202103
  2. PADCEV [Suspect]
     Active Substance: ENFORTUMAB VEDOTIN-EJFV
     Indication: Transitional cell carcinoma metastatic
     Dosage: 95 MILLIGRAM, CYCLICAL (DAYS 1, 8 AND 15 OF A 28 DAY CYCLE) ((3 WEEKS ON, 1 WEEK)
     Dates: start: 202103, end: 20210811
  3. CISPLATIN [Suspect]
     Active Substance: CISPLATIN
     Indication: Neoplasm
     Dosage: UNK
     Route: 065
     Dates: start: 2018
  4. CISPLATIN [Suspect]
     Active Substance: CISPLATIN
     Dosage: UNK
     Route: 065
  5. BYSTOLIC [Concomitant]
     Active Substance: NEBIVOLOL HYDROCHLORIDE
     Dosage: 10 MILLIGRAM, DAILY
     Route: 048
  6. PRILOSEC [Concomitant]
     Active Substance: OMEPRAZOLE MAGNESIUM
     Dosage: UNK, DAILY
  7. TYLENOL [Concomitant]
     Active Substance: ACETAMINOPHEN
     Dosage: 3-4 TABLETS IN A 24 HOUR PERIOD; 500 MG
     Route: 048
  8. LORAZEPAM [Concomitant]
     Active Substance: LORAZEPAM
     Dosage: UNK
     Route: 048

REACTIONS (20)
  - Malignant neoplasm progression [Unknown]
  - Neuropathy peripheral [Not Recovered/Not Resolved]
  - Flank pain [Unknown]
  - Haemorrhoids [Not Recovered/Not Resolved]
  - Sputum increased [Not Recovered/Not Resolved]
  - Gait disturbance [Unknown]
  - Fall [Unknown]
  - Renal neoplasm [Recovering/Resolving]
  - Bronchitis [Not Recovered/Not Resolved]
  - Pain [Recovered/Resolved]
  - Fatigue [Not Recovered/Not Resolved]
  - Constipation [Not Recovered/Not Resolved]
  - Abdominal pain [Not Recovered/Not Resolved]
  - Diarrhoea [Not Recovered/Not Resolved]
  - Asthenia [Not Recovered/Not Resolved]
  - Blood glucose increased [Not Recovered/Not Resolved]
  - Decreased appetite [Not Recovered/Not Resolved]
  - Weight decreased [Recovering/Resolving]
  - Haemoglobin decreased [Recovering/Resolving]
  - Alopecia [Not Recovered/Not Resolved]

NARRATIVE: CASE EVENT DATE: 20201101
